FAERS Safety Report 11836596 (Version 1)
Quarter: 2015Q4

REPORT INFORMATION
  Report Type: Spontaneous
  Country: US (occurrence: US)
  Receive Date: 20151215
  Receipt Date: 20151215
  Transmission Date: 20160305
  Serious: Yes (Other)
  Sender: FDA-Public Use
  Company Number: US-APOTEX-2015AP015186

PATIENT
  Sex: Male

DRUGS (5)
  1. CLOPIDOGREL [Suspect]
     Active Substance: CLOPIDOGREL BISULFATE
     Indication: FEMORAL ARTERY OCCLUSION
     Dosage: 300 MG, SINGLE
     Route: 065
  2. ASPIRIN                            /00002701/ [Suspect]
     Active Substance: ASPIRIN
     Route: 065
  3. CLOPIDOGREL [Suspect]
     Active Substance: CLOPIDOGREL BISULFATE
     Dosage: 75 MG, PER DAY
     Route: 065
  4. WARFARIN [Suspect]
     Active Substance: WARFARIN
     Indication: FEMORAL ARTERY OCCLUSION
     Dosage: UNK
     Route: 065
  5. ASPIRIN                            /00002701/ [Suspect]
     Active Substance: ASPIRIN
     Indication: FEMORAL ARTERY OCCLUSION
     Dosage: 81 MG, PER DAY
     Route: 065

REACTIONS (3)
  - Haematemesis [Recovered/Resolved]
  - Haemorrhage [Recovered/Resolved]
  - Gastritis [Recovered/Resolved]
